FAERS Safety Report 25958912 (Version 1)
Quarter: 2025Q4

REPORT INFORMATION
  Report Type: Report from Study
  Country: US (occurrence: US)
  Receive Date: 20251025
  Receipt Date: 20251025
  Transmission Date: 20260117
  Serious: Yes (Hospitalization, Other)
  Sender: ALEXION PHARMACEUTICALS
  Company Number: US-AstraZeneca-CH-00975449A

PATIENT
  Sex: Female

DRUGS (1)
  1. STRENSIQ [Suspect]
     Active Substance: ASFOTASE ALFA
     Dosage: UNK
     Route: 065

REACTIONS (9)
  - Gastroenteritis viral [Unknown]
  - Fracture [Unknown]
  - Pancreatic disorder [Unknown]
  - Peripheral coldness [Unknown]
  - Blood potassium decreased [Unknown]
  - Blood magnesium decreased [Unknown]
  - Blood alkaline phosphatase increased [Unknown]
  - Osteoporosis [Unknown]
  - Pyrexia [Unknown]
